FAERS Safety Report 4596583-1 (Version None)
Quarter: 2005Q1

REPORT INFORMATION
  Report Type: 
  Country: None (occurrence: None)
  Receive Date: 20050228
  Receipt Date: 20041213
  Transmission Date: 20050727
  Serious: Yes (Congenital Anomaly)
  Sender: FDA-Public Use
  Company Number: 54756/366 B

PATIENT

DRUGS (2)
  1. LEVONORGESTREL [Suspect]
     Dosage: TRANSPLACENTAL
     Route: 064
     Dates: start: 20020307
  2. MICROGYNON LEVONORGESTREL/ETHINYLESTRADIOL COATED TABLET [Suspect]
     Dosage: TRANSPLACENTAL
     Route: 064

REACTIONS (8)
  - ABDOMINAL WALL DISORDER [None]
  - CONGENITAL ANOMALY [None]
  - CONGENITAL SCOLIOSIS [None]
  - DEFORMITY THORAX [None]
  - DRUG EXPOSURE DURING PREGNANCY [None]
  - EXOMPHALOS [None]
  - LIMB REDUCTION DEFECT [None]
  - RIB HYPOPLASIA [None]
